FAERS Safety Report 14617242 (Version 1)
Quarter: 2018Q1

REPORT INFORMATION
  Report Type: Report from Study
  Country: US (occurrence: US)
  Receive Date: 20180309
  Receipt Date: 20180309
  Transmission Date: 20180509
  Serious: Yes (Other)
  Sender: FDA-Public Use
  Company Number: US-TORRENT-00005769

PATIENT
  Age: 17 Year
  Sex: Female

DRUGS (1)
  1. TOPIRAMATE. [Suspect]
     Active Substance: TOPIRAMATE
     Indication: MIGRAINE WITH AURA

REACTIONS (5)
  - Off label use [Unknown]
  - Eating disorder [Unknown]
  - Drug abuse [Unknown]
  - Disease recurrence [Unknown]
  - Weight decreased [Unknown]
